FAERS Safety Report 25244620 (Version 2)
Quarter: 2025Q3

REPORT INFORMATION
  Report Type: Spontaneous
  Country: EU (occurrence: EU)
  Receive Date: 20250428
  Receipt Date: 20250919
  Transmission Date: 20251020
  Serious: Yes (Other)
  Sender: HELSINN HEALTHCARE
  Company Number: EU-Pharmaand-2025000232

PATIENT
  Age: 63 Year
  Sex: Female

DRUGS (4)
  1. MECHLORETHAMINE HYDROCHLORIDE [Suspect]
     Active Substance: MECHLORETHAMINE HYDROCHLORIDE
     Indication: Cutaneous T-cell lymphoma
     Route: 065
  2. PEGASYS [Suspect]
     Active Substance: PEGINTERFERON ALFA-2A
     Indication: Cutaneous T-cell lymphoma
     Dosage: 135 MICROGRAM, QWK
     Route: 065
     Dates: start: 2023
  3. METHOTREXATE [Concomitant]
     Active Substance: METHOTREXATE
     Indication: Cutaneous T-cell lymphoma
  4. TARGRETIN [Concomitant]
     Active Substance: BEXAROTENE
     Indication: Cutaneous T-cell lymphoma

REACTIONS (2)
  - Cutaneous T-cell lymphoma [Unknown]
  - Disease recurrence [Unknown]
